FAERS Safety Report 7268122-8 (Version None)
Quarter: 2011Q1

REPORT INFORMATION
  Report Type: 
  Country: None (occurrence: None)
  Receive Date: 20110201
  Receipt Date: 20110127
  Transmission Date: 20110831
  Serious: No
  Sender: FDA-Public Use
  Company Number: US-PFIZER INC-2011020894

PATIENT
  Sex: Female
  Weight: 57 kg

DRUGS (4)
  1. CITALOPRAM [Concomitant]
     Indication: ANXIETY
     Dosage: UNK
  2. LORAZEPAM [Concomitant]
     Indication: ANXIETY
     Dosage: UNK
  3. CHANTIX [Suspect]
     Indication: SMOKING CESSATION THERAPY
     Dosage: UNK
     Route: 048
     Dates: start: 20080315, end: 20080301
  4. NICOTROL [Suspect]
     Indication: SMOKING CESSATION THERAPY
     Dosage: UNK

REACTIONS (1)
  - NERVOUSNESS [None]
